FAERS Safety Report 9619809 (Version 2)
Quarter: 2013Q4

REPORT INFORMATION
  Report Type: Spontaneous
  Country: FR (occurrence: FR)
  Receive Date: 20131014
  Receipt Date: 20131028
  Transmission Date: 20140711
  Serious: Yes (Hospitalization, Other)
  Sender: FDA-Public Use
  Company Number: FR-TEVA-436562ISR

PATIENT
  Age: 39 Year
  Sex: Male

DRUGS (1)
  1. COTRIMOXAZOLE [Suspect]
     Indication: PNEUMOCYSTIS JIROVECII PNEUMONIA
     Route: 065

REACTIONS (6)
  - Drug hypersensitivity [Unknown]
  - Pyrexia [Unknown]
  - Asthenia [Unknown]
  - Diarrhoea [Unknown]
  - Mouth ulceration [Unknown]
  - Skin lesion [Unknown]
